FAERS Safety Report 5443395-2 (Version None)
Quarter: 2007Q3

REPORT INFORMATION
  Report Type: 
  Country: None (occurrence: None)
  Receive Date: 20070905
  Receipt Date: 20070904
  Transmission Date: 20080115
  Serious: Yes (Hospitalization)
  Sender: FDA-Public Use
  Company Number: B0478919A

PATIENT
  Age: 4 Week
  Sex: Male
  Weight: 3.5 kg

DRUGS (9)
  1. FORTUM [Suspect]
     Indication: SEPSIS
     Dosage: 60MG THREE TIMES PER DAY
     Route: 042
     Dates: start: 20070709, end: 20070718
  2. AMOXICILLIN [Suspect]
     Indication: SEPSIS
     Route: 065
     Dates: start: 20070701, end: 20070709
  3. CLAFORAN [Suspect]
     Indication: SEPSIS
     Route: 065
     Dates: start: 20070701, end: 20070709
  4. GENTAMICIN [Suspect]
     Indication: SEPSIS
     Route: 065
     Dates: start: 20070701, end: 20070709
  5. AMIKLIN [Suspect]
     Indication: SEPSIS
     Dosage: 35MG PER DAY
     Route: 042
     Dates: start: 20070709, end: 20070712
  6. PARACETAMOL [Suspect]
     Indication: PAIN
     Route: 048
  7. VITAMINS [Concomitant]
     Route: 065
  8. FUNGIZONE [Concomitant]
     Indication: ANTIFUNGAL PROPHYLAXIS
     Dosage: 2ML PER DAY
     Route: 048
  9. CIFLOX [Concomitant]
     Dosage: 50MG TWICE PER DAY
     Route: 042

REACTIONS (7)
  - ALANINE AMINOTRANSFERASE INCREASED [None]
  - BILIRUBIN CONJUGATED INCREASED [None]
  - BLOOD ALKALINE PHOSPHATASE DECREASED [None]
  - BLOOD LACTATE DEHYDROGENASE INCREASED [None]
  - GAMMA-GLUTAMYLTRANSFERASE INCREASED [None]
  - HEPATIC ENZYME ABNORMAL [None]
  - TRANSAMINASES INCREASED [None]
